FAERS Safety Report 6285482-5 (Version None)
Quarter: 2009Q3

REPORT INFORMATION
  Report Type: 
  Country: None (occurrence: None)
  Receive Date: 20090727
  Receipt Date: 20090713
  Transmission Date: 20100115
  Serious: Yes (Other)
  Sender: FDA-Public Use
  Company Number: GB-MYLANLABS-2009S1012398

PATIENT
  Age: 23 Year
  Sex: Female

DRUGS (3)
  1. SERTRALINE [Suspect]
     Indication: DEPRESSION
     Route: 048
     Dates: start: 20090521, end: 20090616
  2. SERTRALINE [Suspect]
     Indication: OBSESSIVE-COMPULSIVE DISORDER
     Route: 048
     Dates: start: 20090521, end: 20090616
  3. ACETAMINOPHEN [Concomitant]
     Indication: BACK PAIN
     Route: 048
     Dates: start: 20090601, end: 20090611

REACTIONS (3)
  - HYPERHIDROSIS [None]
  - SENSORY DISTURBANCE [None]
  - TACHYCARDIA [None]
